FAERS Safety Report 9532866 (Version 1)
Quarter: 2013Q2

REPORT INFORMATION
  Report Type: Spontaneous
  Country: US (occurrence: None)
  Receive Date: 20130418
  Receipt Date: 20130418
  Transmission Date: 20140414
  Serious: No
  Sender: FDA-Public Use
  Company Number: 2013PROUSA02496

PATIENT
  Age: 65 Year
  Sex: Male
  Weight: 92.5 kg

DRUGS (6)
  1. PROVENGE (SIPLULEUCEL-T) SUSPENSION, 250ML [Suspect]
     Indication: PROSTATE CANCER METASTATIC
     Route: 042
     Dates: start: 20130110, end: 20130110
  2. B COMPLEX WITH VITAMIN C (ASCORBIC ACID, CALCIUM PANTOTHENATE, NICOTINAMIDE, PYRIDOXINE HYDROCHLORIDE, RIBOFLAVIN, THIAMINE) [Concomitant]
  3. CALTRATE + D (CALCIUM CARBONATE, COLECALCIFEROL) [Concomitant]
  4. FISH OIL (FISH OIL) [Concomitant]
  5. VITAMIN C [Concomitant]
  6. ASPIRIN (ACETYLSALICYLIC ) [Concomitant]

REACTIONS (1)
  - Infusion site haematoma [None]
